FAERS Safety Report 6179345-3 (Version None)
Quarter: 2009Q2

REPORT INFORMATION
  Report Type: 
  Country: None (occurrence: None)
  Receive Date: 20090505
  Receipt Date: 20090427
  Transmission Date: 20091009
  Serious: Yes (Hospitalization)
  Sender: FDA-Public Use
  Company Number: ES-ABBOTT-09P-144-0566392-00

PATIENT
  Age: 72 Year
  Sex: Male

DRUGS (5)
  1. KLACID [Suspect]
     Indication: RESPIRATORY TRACT INFECTION
     Dosage: NOT REPORTED
  2. PARACETAMOL [Suspect]
     Indication: RESPIRATORY TRACT INFECTION
     Dosage: NOT REPORTED
  3. AMOXICILLIN [Suspect]
     Indication: RESPIRATORY TRACT INFECTION
     Dosage: NOT REPORTED
  4. IBUPROFEN [Suspect]
     Indication: RESPIRATORY TRACT INFECTION
     Dosage: NOT REPORTED
  5. IMATINIB MESYLATE [Concomitant]
     Indication: CHRONIC MYELOID LEUKAEMIA

REACTIONS (1)
  - APLASTIC ANAEMIA [None]
